FAERS Safety Report 6502674-8 (Version None)
Quarter: 2009Q4

REPORT INFORMATION
  Report Type: 
  Country: None (occurrence: None)
  Receive Date: 20091127
  Receipt Date: 20090729
  Transmission Date: 20100525
  Serious: No
  Sender: FDA-Public Use
  Company Number: 001379

PATIENT
  Sex: Male
  Weight: 55 kg

DRUGS (5)
  1. LACOSAMIDE [Suspect]
     Indication: CONVULSION
     Dosage: 100 MG BID, STOPPED ^2 DAYS AGO^ ORAL, 200 MG BID, STARTED ^2 DAY AGO^ ORAL
     Route: 048
     Dates: start: 20090601
  2. LACOSAMIDE [Suspect]
     Indication: CONVULSION
     Dosage: 100 MG BID, STOPPED ^2 DAYS AGO^ ORAL, 200 MG BID, STARTED ^2 DAY AGO^ ORAL
     Route: 048
     Dates: start: 20090701
  3. CARBATROL [Concomitant]
  4. LYRICA [Concomitant]
  5. RUFINAMIDE [Concomitant]

REACTIONS (2)
  - PRURITUS [None]
  - RASH GENERALISED [None]
